FAERS Safety Report 8950655 (Version 2)
Quarter: 2014Q2

REPORT INFORMATION
  Report Type: Spontaneous
  Country: FR (occurrence: FR)
  Receive Date: 20121207
  Receipt Date: 20131120
  Transmission Date: 20141212
  Serious: Yes (Death, Life-Threatening, Hospitalization)
  Sender: FDA-Public Use
  Company Number: FR-TEVA-373289ISR

PATIENT
  Age: 64 Year
  Sex: Female

DRUGS (2)
  1. CARBOPLATINE TEVA 10MG/ML, SOLUTION POUR PERFUSION [Suspect]
     Dosage: 2 COURSES
     Route: 041
     Dates: start: 20121003, end: 20121024
  2. ALIMTA 500 MG POUDRE POUR SOLUTION ? DILUER POUR PERFUSION [Suspect]
     Dosage: 2 COURSES
     Route: 041
     Dates: start: 20121003, end: 20121024

REACTIONS (4)
  - Septic shock [Fatal]
  - Enterobacter infection [Fatal]
  - Bone marrow failure [Unknown]
  - Toxic epidermal necrolysis [Unknown]
